FAERS Safety Report 5744230-5 (Version None)
Quarter: 2008Q2

REPORT INFORMATION
  Report Type: 
  Country: None (occurrence: None)
  Receive Date: 20080516
  Receipt Date: 20080516
  Transmission Date: 20081010
  Serious: Yes (Life-Threatening)
  Sender: FDA-Public Use
  Company Number: None

PATIENT
  Sex: Female
  Weight: 92.5338 kg

DRUGS (2)
  1. PRAVASTATIN [Suspect]
     Indication: BLOOD CHOLESTEROL INCREASED
     Dosage: ONE TABLET AT BEDTIME PO
     Route: 048
     Dates: start: 20080501, end: 20080515
  2. PRAVASTATIN [Suspect]
     Indication: HEPATIC STEATOSIS
     Dosage: ONE TABLET AT BEDTIME PO
     Route: 048
     Dates: start: 20080501, end: 20080515

REACTIONS (12)
  - ARTHRALGIA [None]
  - ASTHENIA [None]
  - CHEST DISCOMFORT [None]
  - COUGH [None]
  - FATIGUE [None]
  - INFLUENZA LIKE ILLNESS [None]
  - MYALGIA [None]
  - PHARYNGOLARYNGEAL PAIN [None]
  - PRURITUS [None]
  - PYREXIA [None]
  - SINUSITIS [None]
  - TENDERNESS [None]
